FAERS Safety Report 7509550-2 (Version None)
Quarter: 2011Q2

REPORT INFORMATION
  Report Type: 
  Country: None (occurrence: None)
  Receive Date: 20110527
  Receipt Date: 20110519
  Transmission Date: 20111010
  Serious: Yes (Hospitalization)
  Sender: FDA-Public Use
  Company Number: MW-ABBOTT-11P-100-0727185-00

PATIENT
  Age: 46 Year
  Sex: Male

DRUGS (2)
  1. RALTEGRAVIR [Concomitant]
     Indication: HIV INFECTION
     Dates: start: 20110322, end: 20110518
  2. LOPINAVIR/RITONAVIR [Suspect]
     Indication: HIV INFECTION
     Route: 048
     Dates: start: 20110322, end: 20110518

REACTIONS (6)
  - PERITONITIS [None]
  - VOMITING [None]
  - ABDOMINAL PAIN [None]
  - ACUTE ABDOMEN [None]
  - HICCUPS [None]
  - DIARRHOEA [None]
